FAERS Safety Report 4629248-8 (Version None)
Quarter: 2005Q2

REPORT INFORMATION
  Report Type: 
  Country: None (occurrence: None)
  Receive Date: 20050405
  Receipt Date: 20050323
  Transmission Date: 20051028
  Serious: Yes (Hospitalization, Other)
  Sender: FDA-Public Use
  Company Number: 2005049121

PATIENT
  Age: 48 Year
  Sex: Male
  Weight: 82.5547 kg

DRUGS (1)
  1. DETROL LA [Suspect]
     Indication: HYPERTONIC BLADDER
     Dosage: 4 MG (4 MG, 1 IN 1 D), ORAL
     Route: 048
     Dates: start: 20030101

REACTIONS (3)
  - BLADDER OPERATION [None]
  - CONSTIPATION [None]
  - FLATULENCE [None]
